FAERS Safety Report 6101434-X (Version None)
Quarter: 2009Q1

REPORT INFORMATION
  Report Type: 
  Country: None (occurrence: None)
  Receive Date: 20090227
  Receipt Date: 20090219
  Transmission Date: 20090719
  Serious: Yes (Other)
  Sender: FDA-Public Use
  Company Number: 2009PE0037

PATIENT
  Age: 26 Year
  Sex: Female
  Weight: 65.7716 kg

DRUGS (1)
  1. PRENATE ELITE [Suspect]
     Indication: PREGNANCY
     Dosage: 1 TABLET , DAILY, ORAL
     Route: 048
     Dates: start: 20081201, end: 20090126

REACTIONS (3)
  - DRUG EXPOSURE DURING PREGNANCY [None]
  - FOETAL HEART RATE ABNORMAL [None]
  - HORMONE LEVEL ABNORMAL [None]
